FAERS Safety Report 11857049 (Version 3)
Quarter: 2016Q1

REPORT INFORMATION
  Report Type: Report from Study
  Country: US (occurrence: US)
  Receive Date: 20151221
  Receipt Date: 20160216
  Transmission Date: 20160526
  Serious: Yes (Hospitalization, Other)
  Sender: FDA-Public Use
  Company Number: US-JNJFOC-20151116522

PATIENT
  Age: 71 Year
  Sex: Male

DRUGS (25)
  1. MAGNESIUM OXIDE. [Concomitant]
     Active Substance: MAGNESIUM OXIDE
     Route: 048
  2. IMBRUVICA [Suspect]
     Active Substance: IBRUTINIB
     Indication: THERAPY NAIVE
     Route: 048
     Dates: start: 20150326
  3. FENTANYL. [Concomitant]
     Active Substance: FENTANYL
     Dosage: 1 PATCH EVERY 3 DAYS
     Route: 062
  4. METOPROLOL SUCCINATE. [Concomitant]
     Active Substance: METOPROLOL SUCCINATE
     Route: 048
  5. BREO ELLIPTA [Concomitant]
     Active Substance: FLUTICASONE FUROATE\VILANTEROL TRIFENATATE
     Dosage: 100-25 MCG, QD
     Dates: start: 20141020
  6. BUPROPION HCL [Concomitant]
     Active Substance: BUPROPION HYDROCHLORIDE
     Route: 048
  7. CENTRUM SILVER [Concomitant]
     Active Substance: MINERALS\VITAMINS
     Dosage: 1 TAB, DAILY
     Route: 048
  8. CLOTRIMAZOLE. [Concomitant]
     Active Substance: CLOTRIMAZOLE
     Dosage: 3-4 TIMES DAILY
     Route: 048
  9. ALBUTEROL W/IPRATROPIUM [Concomitant]
     Active Substance: ALBUTEROL\IPRATROPIUM
     Dosage: 0.5-2.5 (3) MG/ML VIAL 4 TIMES DAILY, 1 PUFF 4 TIMES DAILY
     Dates: start: 20151014
  10. OXYCONTIN [Concomitant]
     Active Substance: OXYCODONE HYDROCHLORIDE
     Route: 048
  11. BIFIDOBACTERIUM LACTIS [Concomitant]
     Route: 048
     Dates: start: 20140127
  12. PANTOPRAZOLE [Concomitant]
     Active Substance: PANTOPRAZOLE SODIUM
     Route: 048
  13. IMMUNOGLOBULINS NOS [Concomitant]
     Active Substance: HUMAN IMMUNOGLOBULIN G
  14. ALBUTEROL. [Concomitant]
     Active Substance: ALBUTEROL
     Dosage: 25 MG/3 ML, Q 4 HRS PRN
     Dates: start: 20150727
  15. CALCIUM [Concomitant]
     Active Substance: CALCIUM
     Route: 048
  16. OXYBUTYNIN CHLORIDE. [Concomitant]
     Active Substance: OXYBUTYNIN CHLORIDE
     Route: 048
  17. IMBRUVICA [Suspect]
     Active Substance: IBRUTINIB
     Indication: CHRONIC LYMPHOCYTIC LEUKAEMIA
     Route: 048
     Dates: start: 20150326
  18. ALLOPURINOL. [Concomitant]
     Active Substance: ALLOPURINOL
     Route: 048
     Dates: start: 20150325
  19. MELATONIN [Concomitant]
     Active Substance: MELATONIN
     Dosage: QHS
     Route: 048
  20. OXYCODONE AND ACETAMINOPHEN [Concomitant]
     Active Substance: ACETAMINOPHEN\OXYCODONE HYDROCHLORIDE
     Dosage: 5-325 MG, 1 TAB EVERY 5 HOURS
     Route: 048
  21. IMBRUVICA [Suspect]
     Active Substance: IBRUTINIB
     Indication: B-CELL SMALL LYMPHOCYTIC LYMPHOMA
     Route: 048
     Dates: start: 20150326
  22. ALPRAZOLAM. [Concomitant]
     Active Substance: ALPRAZOLAM
     Dosage: QHS
  23. SODIUM CHLORIDE. [Concomitant]
     Active Substance: SODIUM CHLORIDE
     Route: 048
  24. LIPITOR [Concomitant]
     Active Substance: ATORVASTATIN CALCIUM
     Route: 048
     Dates: start: 20140414
  25. CEFADROXIL. [Concomitant]
     Active Substance: CEFADROXIL
     Route: 048
     Dates: start: 20150929

REACTIONS (8)
  - Oral candidiasis [Unknown]
  - Bronchitis [Unknown]
  - Liver abscess [Unknown]
  - Rectal haemorrhage [Recovered/Resolved]
  - Pyrexia [Recovered/Resolved]
  - Sepsis [Recovered/Resolved]
  - Clostridium difficile infection [Recovered/Resolved]
  - Pneumonia [Unknown]

NARRATIVE: CASE EVENT DATE: 2015
